FAERS Safety Report 11881267 (Version 7)
Quarter: 2018Q2

REPORT INFORMATION
  Report Type: Spontaneous
  Country: US (occurrence: US)
  Receive Date: 20151231
  Receipt Date: 20180402
  Transmission Date: 20180711
  Serious: No
  Sender: FDA-Public Use
  Company Number: US-ASTRAZENECA-2015SF27542

PATIENT
  Age: 22754 Day
  Sex: Female

DRUGS (6)
  1. PULMICORT FLEXHALER [Suspect]
     Active Substance: BUDESONIDE
     Indication: ASTHMA
     Dosage: 180 MICROGRAMS TWO PUFFS TWICE A DAY
     Route: 055
     Dates: start: 201109
  2. PULMICORT FLEXHALER [Suspect]
     Active Substance: BUDESONIDE
     Indication: ASTHMA
     Dosage: 180 MICROGRAMS TWO PUFFS DAILY
     Route: 055
     Dates: start: 201109
  3. PULMICORT FLEXHALER [Suspect]
     Active Substance: BUDESONIDE
     Indication: ASTHMA
     Dosage: 180 MICROGRAMS TWO PUFFS TWICE PER DAY, ONE PUFF IN MORNING AND ONE PUFF IN EVENING
     Route: 055
  4. ATORVASTATIN [Concomitant]
     Active Substance: ATORVASTATIN
     Indication: BLOOD CHOLESTEROL
     Route: 048
  5. PULMICORT FLEXHALER [Suspect]
     Active Substance: BUDESONIDE
     Indication: ASTHMA
     Dosage: PRESCRIBED PULMICORT FLEXHALER 180 MCG, TWICE DAILY
     Route: 055
     Dates: start: 20171231
  6. PSORIASIS [Concomitant]
     Active Substance: COAL TAR
     Indication: PSORIASIS
     Dosage: AS REQUIRED
     Route: 065

REACTIONS (12)
  - Cough [Unknown]
  - Stomatitis [Unknown]
  - Oropharyngeal discomfort [Unknown]
  - Choking [Unknown]
  - Device malfunction [Unknown]
  - Visual acuity reduced [Unknown]
  - Throat irritation [Unknown]
  - Product physical consistency issue [Unknown]
  - Intentional device use issue [Unknown]
  - Intentional product misuse [Unknown]
  - Off label use [Unknown]
  - Product use issue [Unknown]

NARRATIVE: CASE EVENT DATE: 20171231
